FAERS Safety Report 8031482-4 (Version None)
Quarter: 2011Q4

REPORT INFORMATION
  Report Type: 
  Country: None (occurrence: None)
  Receive Date: 20111201
  Receipt Date: 20101008
  Transmission Date: 20120403
  Serious: Yes (Other)
  Sender: FDA-Public Use
  Company Number: 251108USA

PATIENT
  Sex: Female

DRUGS (18)
  1. ALENDRONATE SODIUM [Concomitant]
  2. ESTRADIOL [Suspect]
     Indication: MENOPAUSE
     Dates: start: 19980101, end: 19990101
  3. ESTRADIOL [Suspect]
     Indication: HOT FLUSH
     Dates: start: 19980101, end: 19990101
  4. ESTRADIOL [Suspect]
     Indication: NIGHT SWEATS
     Dates: start: 19980101, end: 19990101
  5. ESTROGENS CONJUGATED [Suspect]
     Indication: MENOPAUSE
     Dates: start: 19820101, end: 20020101
  6. ESTROGENS CONJUGATED [Suspect]
     Indication: HOT FLUSH
     Dates: start: 19820101, end: 20020101
  7. ESTROGENS CONJUGATED [Suspect]
     Indication: NIGHT SWEATS
     Dates: start: 19820101, end: 20020101
  8. MEDROXYPROGESTERONE [Suspect]
     Indication: HOT FLUSH
     Dates: start: 19990101, end: 20020101
  9. MEDROXYPROGESTERONE [Suspect]
     Indication: MENOPAUSE
     Dates: start: 19990101, end: 20020101
  10. MEDROXYPROGESTERONE [Suspect]
     Indication: NIGHT SWEATS
     Dates: start: 19990101, end: 20020101
  11. PROGESTERONE [Suspect]
  12. ORAL CONTRACEPTIVE NOS [Concomitant]
  13. TRAMADOL HCL [Concomitant]
  14. VICODIN [Concomitant]
  15. ESTRADERM [Suspect]
     Indication: HOT FLUSH
     Dosage: TRANSDERMAL
     Route: 062
     Dates: start: 19980101, end: 19990101
  16. ESTRADERM [Suspect]
     Indication: NIGHT SWEATS
     Dosage: TRANSDERMAL
     Route: 062
     Dates: start: 19980101, end: 19990101
  17. ESTRADERM [Suspect]
     Indication: MENOPAUSE
     Dosage: TRANSDERMAL
     Route: 062
     Dates: start: 19980101, end: 19990101
  18. HYOSCYAMINE [Concomitant]

REACTIONS (2)
  - BREAST CYST [None]
  - BREAST CANCER [None]
